FAERS Safety Report 24366091 (Version 1)
Quarter: 2024Q3

REPORT INFORMATION
  Report Type: Spontaneous
  Country: US (occurrence: None)
  Receive Date: 20240925
  Receipt Date: 20240925
  Transmission Date: 20241017
  Serious: Yes (Death)
  Sender: Public
  Company Number: None

PATIENT
  Age: 63 Year
  Sex: Male

DRUGS (1)
  1. MVASI [Suspect]
     Active Substance: BEVACIZUMAB-AWWB
     Dosage: REQ: INFUSE 380 MG I.V.PIGGYBACK EVERY 2 WEEKS.DILUTE WITH NS TQ TOTAL VOLUME QF 100 ML.1ST ?INFUSIO
     Route: 042
     Dates: start: 20240417, end: 20240826

REACTIONS (1)
  - Death [None]

NARRATIVE: CASE EVENT DATE: 20240826
